FAERS Safety Report 6755843-6 (Version None)
Quarter: 2010Q2

REPORT INFORMATION
  Report Type: 
  Country: None (occurrence: None)
  Receive Date: 20100603
  Receipt Date: 20100603
  Transmission Date: 20101027
  Serious: Yes (Hospitalization)
  Sender: FDA-Public Use
  Company Number: None

PATIENT
  Age: 89 Year
  Sex: Female
  Weight: 56.8 kg

DRUGS (8)
  1. OFATUMUMAB 1000 MG GSK [Suspect]
     Indication: LYMPHOMA
     Dosage: 1000 MG Q WEEK IV
     Route: 042
     Dates: start: 20100409, end: 20100430
  2. FILGRASTIM [Concomitant]
  3. ACETAMINOPHEN [Concomitant]
  4. OMEPRAZOLE [Concomitant]
  5. FLUOXETINE HCL [Concomitant]
  6. PRILOSEC [Concomitant]
  7. BUSPAR [Concomitant]
  8. ATENOLOL [Concomitant]

REACTIONS (5)
  - DISSEMINATED INTRAVASCULAR COAGULATION [None]
  - LYMPHOMA [None]
  - MALIGNANT NEOPLASM PROGRESSION [None]
  - RENAL FAILURE [None]
  - TUMOUR LYSIS SYNDROME [None]
